FAERS Safety Report 17791968 (Version 1)
Quarter: 2020Q2

REPORT INFORMATION
  Report Type: Spontaneous
  Country: DE (occurrence: DE)
  Receive Date: 20200515
  Receipt Date: 20200515
  Transmission Date: 20200714
  Serious: Yes (Life-Threatening, Hospitalization, Other)
  Sender: FDA-Public Use
  Company Number: DE-BRISTOL-MYERS SQUIBB COMPANY-BMS-2020-038402

PATIENT
  Age: 63 Year
  Sex: Male
  Weight: 85 kg

DRUGS (3)
  1. YERVOY [Suspect]
     Active Substance: IPILIMUMAB
     Indication: RENAL CANCER METASTATIC
     Route: 042
     Dates: start: 20200212, end: 20200414
  2. NIVOLUMAB [Suspect]
     Active Substance: NIVOLUMAB
     Indication: RENAL CANCER METASTATIC
     Route: 042
     Dates: start: 20200212, end: 20200414
  3. VALSARTAN. [Concomitant]
     Active Substance: VALSARTAN
     Indication: PRODUCT USED FOR UNKNOWN INDICATION
     Route: 065

REACTIONS (4)
  - Dyspnoea exertional [Unknown]
  - Acute respiratory distress syndrome [Unknown]
  - Prescribed overdose [Unknown]
  - Cough [Unknown]

NARRATIVE: CASE EVENT DATE: 20200414
